FAERS Safety Report 12565423 (Version 2)
Quarter: 2016Q3

REPORT INFORMATION
  Report Type: Spontaneous
  Country: LB (occurrence: LB)
  Receive Date: 20160718
  Receipt Date: 20160721
  Transmission Date: 20161109
  Serious: Yes (Other)
  Sender: FDA-Public Use
  Company Number: LB-WATSON-2016-15265

PATIENT
  Age: 30 Year
  Sex: Female

DRUGS (1)
  1. LAMOTRIGINE. [Suspect]
     Active Substance: LAMOTRIGINE
     Indication: SOMATIC SYMPTOM DISORDER
     Dosage: 50 MG, DAILY
     Route: 065

REACTIONS (3)
  - Drug reaction with eosinophilia and systemic symptoms [Recovering/Resolving]
  - Human herpesvirus 6 infection [Recovering/Resolving]
  - Inappropriate antidiuretic hormone secretion [Recovering/Resolving]
